FAERS Safety Report 10356885 (Version 2)
Quarter: 2014Q3

REPORT INFORMATION
  Report Type: Spontaneous
  Country: GB (occurrence: GB)
  Receive Date: 20140801
  Receipt Date: 20140923
  Transmission Date: 20150326
  Serious: Yes (Death)
  Sender: FDA-Public Use
  Company Number: PHFR2014GB005327

PATIENT
  Age: 51 Year
  Sex: Female

DRUGS (1)
  1. CLOZARIL [Suspect]
     Active Substance: CLOZAPINE
     Indication: SCHIZOPHRENIA
     Dosage: UNK UKN, UNK
     Dates: start: 20051104

REACTIONS (1)
  - Death [Fatal]

NARRATIVE: CASE EVENT DATE: 20140701
